FAERS Safety Report 11999660 (Version 1)
Quarter: 2016Q1

REPORT INFORMATION
  Report Type: Spontaneous
  Country: US (occurrence: None)
  Receive Date: 20160203
  Receipt Date: 20160203
  Transmission Date: 20160526
  Serious: Yes (Life-Threatening, Disabling)
  Sender: FDA-Public Use
  Company Number: None

PATIENT
  Age: 9 Month
  Sex: Male

DRUGS (1)
  1. BABY TEETHING GEL (HYLAND HOMEOPATHIC) [Suspect]
     Active Substance: ATROPA BELLADONNA\CALCIUM PHOSPHATE\CHAMOMILE\COFFEA ARABICA FRUIT
     Indication: SEIZURE
     Route: 048

REACTIONS (3)
  - Head injury [None]
  - Fall [None]
  - Seizure [None]

NARRATIVE: CASE EVENT DATE: 20150909
